FAERS Safety Report 20942963 (Version 3)
Quarter: 2022Q3

REPORT INFORMATION
  Report Type: Other
  Country: US (occurrence: None)
  Receive Date: 20220610
  Receipt Date: 20220814
  Transmission Date: 20221026
  Serious: Yes (Other)
  Sender: FDA-Public Use
  Company Number: US-ROCHE-3113268

PATIENT
  Sex: Female
  Weight: 38.590 kg

DRUGS (3)
  1. NUTROPIN [Suspect]
     Active Substance: SOMATROPIN
     Indication: Hypopituitarism
     Dosage: EVERY DAY
     Route: 065
  2. NUTROPIN [Suspect]
     Active Substance: SOMATROPIN
  3. PROVIGIL [Concomitant]
     Active Substance: MODAFINIL
     Indication: Sleep disorder

REACTIONS (7)
  - Colitis microscopic [Unknown]
  - Somnolence [Unknown]
  - Multiple injuries [Unknown]
  - Hypersomnia [Unknown]
  - Amnesia [Unknown]
  - Haemorrhage [Unknown]
  - Product prescribing error [Unknown]

NARRATIVE: CASE EVENT DATE: 20170101
